FAERS Safety Report 8062001-4 (Version None)
Quarter: 2012Q1

REPORT INFORMATION
  Report Type: 
  Country: None (occurrence: None)
  Receive Date: 20120123
  Receipt Date: 20120112
  Transmission Date: 20120608
  Serious: Yes (Hospitalization)
  Sender: FDA-Public Use
  Company Number: US-BAYER-2011-040481

PATIENT
  Age: 16 Year
  Sex: Female
  Weight: 81.633 kg

DRUGS (11)
  1. PEPCID [Concomitant]
     Dosage: 20 MG, BID
     Route: 048
     Dates: start: 20070101
  2. DOCUSATE [Concomitant]
     Dosage: 100 MG, BID
     Route: 048
     Dates: start: 20070201
  3. MAGNESIUM HYDROXIDE TAB [Concomitant]
     Dosage: UNK
     Route: 048
     Dates: start: 20070101
  4. STOMATOLOGICALS, MOUTH PREPARATIONS [Concomitant]
     Indication: PAIN
     Dosage: 30 ML, EVERY 6 HOURS AS NEEDED
     Route: 048
     Dates: start: 20070201
  5. YAZ [Suspect]
     Indication: PRODUCT USED FOR UNKNOWN INDICATION
  6. RANITIDINE [Concomitant]
     Dosage: 75 MG, QD
     Route: 048
     Dates: start: 20070201
  7. NICOTINE [Concomitant]
     Dosage: 14 MG, QD
     Route: 062
     Dates: start: 20070201
  8. YASMIN [Suspect]
     Indication: PRODUCT USED FOR UNKNOWN INDICATION
     Dosage: UNK
     Dates: start: 20050101
  9. CALCIUM CARBONATE [Concomitant]
     Dosage: UNK UNK, PRN
     Route: 048
     Dates: start: 20070201
  10. SENNA [Concomitant]
     Dosage: 2 DF, QD
     Route: 048
     Dates: start: 20070201
  11. OXYCODONE HCL [Concomitant]
     Dosage: 5 MG, Q4HR
     Dates: start: 20070201

REACTIONS (4)
  - CHOLECYSTITIS CHRONIC [None]
  - GALLBLADDER DISORDER [None]
  - PAIN [None]
  - CHOLELITHIASIS [None]
